FAERS Safety Report 14019618 (Version 1)
Quarter: 2017Q3

REPORT INFORMATION
  Report Type: Report from Study
  Country: TW (occurrence: TW)
  Receive Date: 20170928
  Receipt Date: 20170928
  Transmission Date: 20171128
  Serious: Yes (Other)
  Sender: FDA-Public Use
  Company Number: TW-INCYTE CORPORATION-2017IN008135

PATIENT
  Age: 38 Year
  Sex: Female
  Weight: 44 kg

DRUGS (3)
  1. JAKAVI [Suspect]
     Active Substance: RUXOLITINIB
     Indication: MYELOFIBROSIS
     Dosage: 2 DF, BID
     Route: 048
     Dates: start: 20170630, end: 20170706
  2. JAKAVI [Suspect]
     Active Substance: RUXOLITINIB
     Dosage: 4 DF, BID
     Route: 048
     Dates: start: 20170707, end: 20170911
  3. JAKAVI [Suspect]
     Active Substance: RUXOLITINIB
     Dosage: 2 DF, BID
     Route: 048
     Dates: start: 20170912

REACTIONS (1)
  - Bicytopenia [Not Recovered/Not Resolved]

NARRATIVE: CASE EVENT DATE: 20170911
